FAERS Safety Report 13160943 (Version 1)
Quarter: 2017Q1

REPORT INFORMATION
  Report Type: Spontaneous
  Country: US (occurrence: US)
  Receive Date: 20170130
  Receipt Date: 20170130
  Transmission Date: 20170428
  Serious: No
  Sender: FDA-Public Use
  Company Number: US-ASTRAZENECA-2017SE08375

PATIENT
  Age: 22968 Day
  Sex: Female
  Weight: 68 kg

DRUGS (1)
  1. SEROQUEL [Suspect]
     Active Substance: QUETIAPINE FUMARATE
     Dosage: 50MG, 1 TO 2 TABLETS AT BEDTIME, FOR A TOTAL DOSE OF 50 TO 100MG NIGHTLY.
     Route: 048
     Dates: start: 2002

REACTIONS (3)
  - Intentional device misuse [Unknown]
  - Insomnia [Not Recovered/Not Resolved]
  - Nightmare [Not Recovered/Not Resolved]

NARRATIVE: CASE EVENT DATE: 20170111
